FAERS Safety Report 9678425 (Version 1)
Quarter: 2013Q4

REPORT INFORMATION
  Report Type: Spontaneous
  Country: TR (occurrence: TR)
  Receive Date: 20131108
  Receipt Date: 20131108
  Transmission Date: 20140711
  Serious: Yes (Other)
  Sender: FDA-Public Use
  Company Number: TR-GILEAD-2013-0087115

PATIENT
  Age: 27 Year
  Sex: Male

DRUGS (2)
  1. TENOFOVIR DISOPROXIL FUMARATE [Suspect]
     Indication: HEPATITIS B
     Dosage: 245 MG, QD
  2. ENTECAVIR [Concomitant]
     Indication: HEPATITIS B

REACTIONS (2)
  - Pathogen resistance [Unknown]
  - Drug ineffective [Unknown]
